FAERS Safety Report 8356544-3 (Version None)
Quarter: 2012Q2

REPORT INFORMATION
  Report Type: 
  Country: None (occurrence: None)
  Receive Date: 20120514
  Receipt Date: 20120507
  Transmission Date: 20120825
  Serious: Yes (Life-Threatening, Other)
  Sender: FDA-Public Use
  Company Number: PHHY2012JP020683

PATIENT
  Sex: Female

DRUGS (10)
  1. GILENYA [Suspect]
     Indication: MULTIPLE SCLEROSIS
     Dosage: 0.5 MG, QD
     Route: 048
     Dates: start: 20120210, end: 20120331
  2. GILENYA [Suspect]
     Dosage: 0.5 MG, QD
     Route: 048
     Dates: end: 20120501
  3. IMMUNOADSORPTION THERAPY [Concomitant]
     Indication: APHERESIS
  4. CORTICOSTEROIDS [Concomitant]
     Dosage: 1000 MG, QD
     Route: 051
     Dates: start: 20110704, end: 20110706
  5. ALENDRONATE SODIUM [Concomitant]
     Dosage: 35 MG, Q12H
     Route: 048
  6. VITAMIN B12 [Concomitant]
     Dosage: 150 UG, UNK
     Route: 048
  7. BETASERON [Concomitant]
     Dosage: 8 MIU, QOD
     Route: 058
  8. LANSOPRAZOLE [Concomitant]
     Dosage: 30 MG, QD
     Route: 048
  9. PREDNISOLONE [Concomitant]
     Dosage: 15 MG, UNK
     Route: 048
  10. SELBEX [Concomitant]
     Dosage: 150 MG, UNK
     Route: 048

REACTIONS (9)
  - ALTERED STATE OF CONSCIOUSNESS [None]
  - BLOOD PRESSURE DECREASED [None]
  - BRADYCARDIA [None]
  - SEPTIC SHOCK [None]
  - VOMITING [None]
  - PYREXIA [None]
  - INFECTION [None]
  - LYMPHOCYTE COUNT DECREASED [None]
  - WHITE BLOOD CELL COUNT DECREASED [None]
